FAERS Safety Report 7937569-6 (Version None)
Quarter: 2011Q4

REPORT INFORMATION
  Report Type: 
  Country: None (occurrence: None)
  Receive Date: 20111123
  Receipt Date: 20111109
  Transmission Date: 20120403
  Serious: Yes (Hospitalization)
  Sender: FDA-Public Use
  Company Number: US-OPTIMER-20110052

PATIENT
  Sex: Female

DRUGS (1)
  1. DIFICID [Suspect]
     Indication: CLOSTRIDIUM DIFFICILE COLITIS
     Dosage: 200 MG, BID
     Route: 048

REACTIONS (3)
  - OFF LABEL USE [None]
  - ANAEMIA [None]
  - DIARRHOEA [None]
